FAERS Safety Report 17574052 (Version 1)
Quarter: 2020Q1

REPORT INFORMATION
  Report Type: Spontaneous
  Country: IT (occurrence: IT)
  Receive Date: 20200323
  Receipt Date: 20200323
  Transmission Date: 20200409
  Serious: Yes (Other)
  Sender: FDA-Public Use
  Company Number: IT-MYLANLABS-2020M1030758

PATIENT
  Age: 73 Year
  Sex: Male

DRUGS (7)
  1. CARDIRENE [Concomitant]
     Active Substance: ASPIRIN DL-LYSINE
  2. HIROBRIZ BREEZHALER [Concomitant]
     Active Substance: INDACATEROL MALEATE
  3. CARDURA [Concomitant]
     Active Substance: DOXAZOSIN MESYLATE
  4. SELOKEN                            /00376902/ [Concomitant]
     Active Substance: METOPROLOL TARTRATE
  5. TORVAST [Concomitant]
     Active Substance: ATORVASTATIN
  6. PARIET [Concomitant]
     Active Substance: RABEPRAZOLE SODIUM
  7. RAMIPRIL. [Suspect]
     Active Substance: RAMIPRIL
     Indication: HYPERTENSION
     Dosage: 5 MILLIGRAM, QD
     Route: 048
     Dates: start: 20190102, end: 20200102

REACTIONS (2)
  - Angioedema [Recovering/Resolving]
  - Productive cough [Recovering/Resolving]

NARRATIVE: CASE EVENT DATE: 20200102
